FAERS Safety Report 4866388-2 (Version None)
Quarter: 2005Q4

REPORT INFORMATION
  Report Type: 
  Country: None (occurrence: None)
  Receive Date: 20051227
  Receipt Date: 20050706
  Transmission Date: 20060501
  Serious: Yes (Hospitalization)
  Sender: FDA-Public Use
  Company Number: US-MERCK-0507USA01031

PATIENT
  Age: 70 Year
  Sex: Male
  Weight: 88 kg

DRUGS (20)
  1. VIOXX [Suspect]
     Indication: PROCEDURAL PAIN
     Route: 048
     Dates: start: 20000124, end: 20040901
  2. ZAROXOLYN [Concomitant]
     Route: 065
  3. ZETIA [Concomitant]
     Route: 065
  4. DOXAZOSIN MESYLATE [Concomitant]
     Route: 065
  5. AMARYL [Concomitant]
     Route: 065
  6. ISOSORBIDE [Concomitant]
     Route: 065
  7. HYZAAR [Concomitant]
     Route: 065
  8. METFORMIN [Concomitant]
     Route: 065
  9. LOTREL [Concomitant]
     Route: 065
  10. COREG [Concomitant]
     Route: 065
  11. INSULIN [Concomitant]
     Route: 065
  12. LASIX [Concomitant]
     Route: 065
     Dates: start: 20000421, end: 20040824
  13. LIPITOR [Concomitant]
     Route: 065
     Dates: start: 19991221, end: 20040823
  14. POTASSIUM CHLORIDE [Concomitant]
     Route: 065
  15. FLONASE [Concomitant]
     Route: 065
  16. PROTONIX [Concomitant]
     Route: 065
  17. NORVASC [Concomitant]
     Route: 065
  18. TOPROL-XL [Concomitant]
     Route: 065
  19. ACCUPRIL [Concomitant]
     Route: 065
     Dates: start: 20000125, end: 20031018
  20. ASPIRIN [Concomitant]
     Route: 065

REACTIONS (2)
  - CARDIAC FAILURE CONGESTIVE [None]
  - EPISTAXIS [None]
